FAERS Safety Report 10469260 (Version 1)
Quarter: 2014Q3

REPORT INFORMATION
  Report Type: Spontaneous
  Country: US (occurrence: None)
  Receive Date: 20140922
  Receipt Date: 20140922
  Transmission Date: 20150326
  Serious: No
  Sender: FDA-Public Use
  Company Number: None

PATIENT
  Age: 47 Year
  Sex: Female
  Weight: 74.39 kg

DRUGS (1)
  1. TOPAMAX [Suspect]
     Active Substance: TOPIRAMATE
     Indication: HEADACHE
     Dosage: 1 A DAY, TAKEN BY MOUTH
     Route: 048
     Dates: start: 20140909, end: 20140919

REACTIONS (6)
  - Vision blurred [None]
  - Eye irritation [None]
  - Eyelid oedema [None]
  - Ocular hyperaemia [None]
  - Eye pain [None]
  - Blindness [None]

NARRATIVE: CASE EVENT DATE: 20140919
